FAERS Safety Report 4938255-7 (Version None)
Quarter: 2006Q1

REPORT INFORMATION
  Report Type: 
  Country: None (occurrence: None)
  Receive Date: 20060309
  Receipt Date: 20050209
  Transmission Date: 20060701
  Serious: Yes (Disabling)
  Sender: FDA-Public Use
  Company Number: US-MERCK-0502USA01337

PATIENT
  Sex: Male
  Weight: 105 kg

DRUGS (4)
  1. VIOXX [Suspect]
     Indication: BACK PAIN
     Route: 048
     Dates: start: 20010601, end: 20040901
  2. GLUCOPHAGE [Concomitant]
     Route: 065
  3. LIPITOR [Concomitant]
     Route: 065
  4. GLUCOTROL [Concomitant]
     Route: 065

REACTIONS (5)
  - ARTHROPATHY [None]
  - CERVICOBRACHIAL SYNDROME [None]
  - MYOCARDIAL INFARCTION [None]
  - ROTATOR CUFF SYNDROME [None]
  - SPINAL COLUMN STENOSIS [None]
